FAERS Safety Report 6335428-6 (Version None)
Quarter: 2009Q3

REPORT INFORMATION
  Report Type: 
  Country: None (occurrence: None)
  Receive Date: 20090831
  Receipt Date: 20090824
  Transmission Date: 20100115
  Serious: Yes (Hospitalization)
  Sender: FDA-Public Use
  Company Number: PHEH2009US08576

PATIENT
  Sex: Female
  Weight: 89.3 kg

DRUGS (11)
  1. RECLAST [Suspect]
     Indication: OSTEOPOROSIS
     Dosage: 5 MG, ONCE/SINGLE
     Dates: start: 20090728, end: 20090728
  2. TYLENOL (CAPLET) [Suspect]
     Indication: PYREXIA
     Dosage: UNK, UNK
  3. IBUPROFEN [Suspect]
     Indication: PYREXIA
     Dosage: UNK, UNK
  4. HYZAAR [Concomitant]
     Dosage: 100/125 QD
  5. THYROID TAB [Concomitant]
     Dosage: 120 MG MWF, 90 MG TRSS
  6. CALCIUM [Concomitant]
     Dosage: UNK, UNK
  7. MAGNESIUM [Concomitant]
     Dosage: UNK, UNK
  8. VITAMIN D [Concomitant]
  9. ERGOCALCIFEROL/CALCIUM PHOSP/CALCIUM SOD LACT [Concomitant]
     Dosage: 50000 UNITS WEEKLY
  10. AMLODIPINE [Concomitant]
     Dosage: 10 MG, UNK
  11. FLUOXETINE [Concomitant]

REACTIONS (8)
  - CHILLS [None]
  - DYSPNOEA [None]
  - ERYTHEMA [None]
  - FATIGUE [None]
  - HEADACHE [None]
  - NAUSEA [None]
  - OROPHARYNGEAL PAIN [None]
  - PYREXIA [None]
